FAERS Safety Report 7319000-7 (Version None)
Quarter: 2011Q1

REPORT INFORMATION
  Report Type: 
  Country: None (occurrence: None)
  Receive Date: 20110223
  Receipt Date: 20110223
  Transmission Date: 20110831
  Serious: Yes (Life-Threatening, Disabling, Other)
  Sender: FDA-Public Use
  Company Number: None

PATIENT
  Age: 21 Year
  Sex: Female
  Weight: 64.4108 kg

DRUGS (2)
  1. LOESTRIN 24 FE [Suspect]
     Indication: CONTRACEPTION
     Dosage: ONCE DAILY ONCE DAILY
     Dates: start: 20110101, end: 20110220
  2. LOESTRIN 24 FE [Suspect]
     Indication: HORMONE THERAPY
     Dosage: ONCE DAILY ONCE DAILY
     Dates: start: 20110101, end: 20110220

REACTIONS (6)
  - ABDOMINAL DISCOMFORT [None]
  - ANXIETY [None]
  - VOMITING [None]
  - DEPRESSION [None]
  - SUICIDAL IDEATION [None]
  - HYPOPHAGIA [None]
